FAERS Safety Report 16076134 (Version 1)
Quarter: 2019Q1

REPORT INFORMATION
  Report Type: Spontaneous
  Country: US (occurrence: US)
  Receive Date: 20190213
  Receipt Date: 20190213
  Transmission Date: 20190418
  Serious: Yes (Hospitalization)
  Sender: FDA-Public Use
  Company Number: None

PATIENT
  Age: 73 Year
  Sex: Male
  Weight: 67.59 kg

DRUGS (1)
  1. YESCARTA [Suspect]
     Active Substance: AXICABTAGENE CILOLEUCEL
     Indication: DIFFUSE LARGE B-CELL LYMPHOMA
     Dosage: ?          OTHER DOSE:2 X 10^6 PER KG  M;?
     Route: 042
     Dates: start: 20190108

REACTIONS (4)
  - Neurotoxicity [None]
  - Cardiorenal syndrome [None]
  - Disease recurrence [None]
  - Disease progression [None]

NARRATIVE: CASE EVENT DATE: 20190108
